FAERS Safety Report 7048104-1 (Version None)
Quarter: 2010Q4

REPORT INFORMATION
  Report Type: 
  Country: None (occurrence: None)
  Receive Date: 20101015
  Receipt Date: 20101005
  Transmission Date: 20110411
  Serious: Yes (Disabling)
  Sender: FDA-Public Use
  Company Number: GXKR2010GB11248

PATIENT
  Age: 60 Year
  Sex: Female
  Weight: 60 kg

DRUGS (2)
  1. SIMVASTATIN (NGX) [Suspect]
     Indication: HYPERCHOLESTEROLAEMIA
     Dosage: 20 MG, UNK
     Route: 048
     Dates: start: 20050101
  2. PAROXETINE HCL [Concomitant]
     Indication: DEPRESSION
     Dosage: 40 MG, UNK
     Route: 048
     Dates: start: 19980101

REACTIONS (5)
  - DEPRESSION [None]
  - FATIGUE [None]
  - FIBROMYALGIA [None]
  - MOBILITY DECREASED [None]
  - PAIN [None]
